FAERS Safety Report 9343155 (Version 1)
Quarter: 2013Q2

REPORT INFORMATION
  Report Type: Spontaneous
  Country: DE (occurrence: DE)
  Receive Date: 20130611
  Receipt Date: 20130611
  Transmission Date: 20140414
  Serious: Yes (Congenital Anomaly)
  Sender: FDA-Public Use
  Company Number: DE-ASTRAZENECA-2013SE40677

PATIENT
  Age: 0 Week
  Sex: Female
  Weight: 3.8 kg

DRUGS (7)
  1. SEROQUEL PROLONG [Suspect]
     Indication: DEPRESSION
     Route: 064
  2. SEROQUEL PROLONG [Suspect]
     Indication: DEPRESSION
     Route: 064
     Dates: end: 20091211
  3. OMEPRAZOLE [Suspect]
     Indication: GASTROOESOPHAGEAL REFLUX DISEASE
     Route: 064
     Dates: start: 20090303, end: 20091211
  4. FOLIO FORTE [Suspect]
     Indication: PROPHYLAXIS OF NEURAL TUBE DEFECT
     Route: 064
     Dates: start: 20090415
  5. EDRONAX [Concomitant]
     Indication: DEPRESSION
     Route: 064
  6. CYMBALTA [Concomitant]
     Indication: DEPRESSION
     Route: 064
  7. SIMVASTATIN [Concomitant]
     Indication: HYPERCHOLESTEROLAEMIA
     Route: 064

REACTIONS (1)
  - Cleft lip and palate [Recovered/Resolved]
